FAERS Safety Report 5033135-3 (Version None)
Quarter: 2006Q2

REPORT INFORMATION
  Report Type: 
  Country: None (occurrence: None)
  Receive Date: 20060505
  Receipt Date: 20051213
  Transmission Date: 20061013
  Serious: Yes (Disabling)
  Sender: FDA-Public Use
  Company Number: PHEH2005US11587

PATIENT
  Age: 61 Year
  Sex: Male
  Weight: 78.9 kg

DRUGS (8)
  1. DIOVAN HCT [Suspect]
     Indication: HYPERTENSION
     Dosage: SEE IMAGE
     Route: 048
     Dates: start: 20040820
  2. ACTOS (PIOGLITAZONE, PIOGLITAZONE HYDROCHLORIDE) [Concomitant]
  3. GLIPIZIDE [Concomitant]
  4. LABETALOL HCL [Concomitant]
  5. TRICOR (FENIFIBRATE) [Concomitant]
  6. ALLEGRA [Concomitant]
  7. RHINOCORT [Concomitant]
  8. FOLIC ACID [Concomitant]

REACTIONS (4)
  - BLOOD CREATINE PHOSPHOKINASE INCREASED [None]
  - BLOOD PRESSURE INCREASED [None]
  - MUSCULAR WEAKNESS [None]
  - MYALGIA [None]
